FAERS Safety Report 9745054 (Version 2)
Quarter: 2013Q4

REPORT INFORMATION
  Report Type: Spontaneous
  Country: FR (occurrence: FR)
  Receive Date: 20131211
  Receipt Date: 20131223
  Transmission Date: 20140711
  Serious: Yes (Other)
  Sender: FDA-Public Use
  Company Number: FR-JNJFOC-20131201173

PATIENT
  Age: 64 Year
  Sex: Male

DRUGS (11)
  1. HALDOL [Suspect]
     Indication: BIPOLAR DISORDER
     Route: 048
     Dates: start: 20131015, end: 20131024
  2. HALDOL DECANOAS [Suspect]
     Indication: BIPOLAR DISORDER
     Route: 030
     Dates: start: 20131023
  3. DEPAKINE [Suspect]
     Indication: BIPOLAR DISORDER
     Dosage: EVENING
     Route: 048
     Dates: start: 20131108
  4. DEPAKINE [Suspect]
     Indication: BIPOLAR DISORDER
     Route: 048
     Dates: start: 20131025
  5. DEPAKINE [Suspect]
     Indication: BIPOLAR DISORDER
     Dosage: MORNING AND EVENING
     Route: 048
     Dates: start: 20131112
  6. DEPAKINE [Suspect]
     Indication: BIPOLAR DISORDER
     Route: 048
  7. DEPAKINE [Suspect]
     Indication: BIPOLAR DISORDER
     Dosage: MORNING
     Route: 048
     Dates: start: 20131108
  8. DEPAKINE [Suspect]
     Indication: BIPOLAR DISORDER
     Dosage: MORNING
     Route: 048
     Dates: start: 20131113, end: 20131114
  9. VALIUM [Concomitant]
     Indication: BIPOLAR DISORDER
     Route: 048
  10. AUGMENTIN [Concomitant]
     Indication: PNEUMONIA
     Route: 065
     Dates: start: 20131018
  11. ROCEPHIN [Concomitant]
     Indication: PNEUMONIA
     Route: 065
     Dates: start: 20131024, end: 20131030

REACTIONS (1)
  - Neutropenia [Recovering/Resolving]
